FAERS Safety Report 7302642-2 (Version None)
Quarter: 2011Q1

REPORT INFORMATION
  Report Type: 
  Country: None (occurrence: None)
  Receive Date: 20110218
  Receipt Date: 20110210
  Transmission Date: 20110831
  Serious: Yes (Other)
  Sender: FDA-Public Use
  Company Number: US-CEPHALON-2011000667

PATIENT
  Sex: Male

DRUGS (2)
  1. ANTIDEPRESSANT THERAPY [Concomitant]
  2. NUVIGIL [Suspect]
     Route: 048
     Dates: start: 20110208

REACTIONS (2)
  - PARANOIA [None]
  - ABNORMAL BEHAVIOUR [None]
